FAERS Safety Report 13023755 (Version 5)
Quarter: 2017Q2

REPORT INFORMATION
  Report Type: Spontaneous
  Country: FR (occurrence: FR)
  Receive Date: 20161213
  Receipt Date: 20170407
  Transmission Date: 20170830
  Serious: Yes (Hospitalization)
  Sender: FDA-Public Use
  Company Number: PHHY2016FR168893

PATIENT
  Age: 63 Year
  Sex: Female

DRUGS (5)
  1. ZOLEDRONATE [Suspect]
     Active Substance: ZOLEDRONIC ACID
     Indication: OSTEOPOROTIC FRACTURE
     Dosage: 5 MG, UNK
     Route: 042
  2. LEVOTHYROXINE. [Concomitant]
     Active Substance: LEVOTHYROXINE
     Indication: HYPOTHYROIDISM
     Dosage: 100 UG, QD
     Route: 065
  3. VALSARTAN. [Concomitant]
     Active Substance: VALSARTAN
     Indication: HYPERTENSION
     Dosage: 80 MG, QD
     Route: 065
  4. ZOLPIDEM [Concomitant]
     Active Substance: ZOLPIDEM\ZOLPIDEM TARTRATE
     Indication: PRODUCT USED FOR UNKNOWN INDICATION
     Dosage: 8 MG, QD
     Route: 065
  5. FENOFIBRATE. [Concomitant]
     Active Substance: FENOFIBRATE
     Indication: DYSLIPIDAEMIA
     Dosage: 145 MG, QD
     Route: 065

REACTIONS (8)
  - Joint effusion [Recovering/Resolving]
  - Leukocytosis [Recovering/Resolving]
  - Spinal pain [Recovered/Resolved]
  - Lymphopenia [Recovering/Resolving]
  - Chondrocalcinosis pyrophosphate [Recovered/Resolved]
  - Dyspnoea [Recovering/Resolving]
  - Arthralgia [Recovering/Resolving]
  - Osteoarthritis [Recovering/Resolving]
